FAERS Safety Report 4691047-9 (Version None)
Quarter: 2005Q2

REPORT INFORMATION
  Report Type: 
  Country: None (occurrence: None)
  Receive Date: 20050615
  Receipt Date: 20050610
  Transmission Date: 20051028
  Serious: Yes (Death)
  Sender: FDA-Public Use
  Company Number: 2005UW08999

PATIENT
  Age: 74 Year
  Sex: Male

DRUGS (2)
  1. PULMICORT [Suspect]
     Route: 055
  2. SEROQUEL [Suspect]
     Route: 048

REACTIONS (1)
  - DEATH [None]
